FAERS Safety Report 8191579 (Version 3)
Quarter: 2013Q1

REPORT INFORMATION
  Report Type: Report from Study
  Country: US (occurrence: US)
  Receive Date: 20111020
  Receipt Date: 20130214
  Transmission Date: 20140127
  Serious: Yes (Hospitalization)
  Sender: FDA-Public Use
  Company Number: US-UCBSA-043575

PATIENT
  Age: 66 Year
  Sex: Male
  Weight: 72 kg

DRUGS (30)
  1. CERTOLIZUMAB PEGOL [Suspect]
     Indication: RHEUMATOID ARTHRITIS
     Dosage: 200 GM
     Route: 058
     Dates: start: 20110719, end: 20110928
  2. CALCIUM [Concomitant]
     Indication: MINERAL SUPPLEMENTATION
     Dates: start: 2005
  3. FOLIC ACID [Concomitant]
     Indication: VITAMIN SUPPLEMENTATION
     Dates: start: 2010
  4. ZYRTEC [Concomitant]
     Indication: SEASONAL ALLERGY
     Dates: start: 2008
  5. FLOMAX [Concomitant]
     Indication: PROSTATOMEGALY
     Dates: start: 2005
  6. ZOCOR [Concomitant]
     Indication: HYPERCHOLESTEROLAEMIA
     Dates: start: 2005
  7. AMBIEN [Concomitant]
     Indication: INSOMNIA
     Dosage: 10 MG AS NECESSARY
     Dates: start: 2005
  8. COLCHICINE [Concomitant]
     Indication: PROPHYLAXIS
     Dosage: 0.6 MG AS NECESSARY
     Dates: start: 2004
  9. FIBER [Concomitant]
     Indication: CONSTIPATION
     Dosage: 1 TAB THREE TIMES DAILY
     Dates: start: 2006
  10. XOPENEX [Concomitant]
     Indication: CHRONIC OBSTRUCTIVE PULMONARY DISEASE
     Dosage: 1.25/3 ML, THREE TIMES DAILY
     Dates: start: 20100630
  11. SPIRIVA [Concomitant]
     Indication: CHRONIC OBSTRUCTIVE PULMONARY DISEASE
     Dates: start: 2005
  12. ASMANEX [Concomitant]
     Indication: CHRONIC OBSTRUCTIVE PULMONARY DISEASE
     Dates: start: 2005
  13. ASMANEX [Concomitant]
     Indication: CHRONIC OBSTRUCTIVE PULMONARY DISEASE
     Dosage: 1.25,NEBULIZER
  14. MTX [Concomitant]
     Indication: RHEUMATOID ARTHRITIS
     Dates: start: 2010
  15. PREDNISONE [Concomitant]
     Indication: RHEUMATOID ARTHRITIS
     Dates: start: 2005
  16. PREDNISONE [Concomitant]
     Indication: RHEUMATOID ARTHRITIS
     Dosage: DAILY DOSE-10 MG
  17. LORCET [Concomitant]
     Indication: RHEUMATOID ARTHRITIS
     Dosage: 10/650 MG
     Dates: start: 2010
  18. PRIMIDONE [Concomitant]
     Indication: ESSENTIAL TREMOR
     Dates: start: 2002
  19. KLONOPIN [Concomitant]
     Indication: RESTLESS LEGS SYNDROME
     Dates: start: 2005
  20. DEXILANT [Concomitant]
     Indication: GASTROOESOPHAGEAL REFLUX DISEASE
     Dates: start: 2009
  21. CALCIUM PLUS D [Concomitant]
  22. METAMUCIL [Concomitant]
  23. KAPIDEX [Concomitant]
     Dosage: DAILY DOSE-60 MG
  24. GLYCOLAX [Concomitant]
     Indication: CONSTIPATION
     Dosage: ONE CAPFUL DAILY
  25. REGLAN [Concomitant]
     Dosage: WITH MEALS AND NIGHT TIME
  26. ZANTAC [Concomitant]
     Dosage: DAILY DOSE-150 MG
  27. FOSAMAX [Concomitant]
  28. NEXIUM [Concomitant]
  29. PRILOSEC [Concomitant]
  30. PROTONIX [Concomitant]

REACTIONS (1)
  - Postoperative wound infection [Recovered/Resolved]
